FAERS Safety Report 9988646 (Version 1)
Quarter: 2014Q1

REPORT INFORMATION
  Report Type: Spontaneous
  Country: GB (occurrence: GB)
  Receive Date: 20140310
  Receipt Date: 20140310
  Transmission Date: 20141002
  Serious: Yes (Life-Threatening)
  Sender: FDA-Public Use
  Company Number: GB-RANBAXY-2014R1-78680

PATIENT
  Age: 72 Year
  Sex: Male
  Weight: 128 kg

DRUGS (4)
  1. AMOXICILLIN [Suspect]
     Indication: GASTROINTESTINAL SURGERY
     Dosage: UNK
     Route: 042
     Dates: start: 20140205
  2. METRONIDAZOLE [Suspect]
     Indication: GASTROINTESTINAL SURGERY
     Dosage: UNK
     Route: 042
     Dates: start: 20140205
  3. ONDANSETRON [Suspect]
     Indication: GASTROINTESTINAL SURGERY
     Dosage: UNK
     Route: 042
     Dates: start: 20140205
  4. GENTAMICIN [Suspect]
     Indication: GASTROINTESTINAL SURGERY
     Dosage: UNK
     Route: 042
     Dates: start: 20140205

REACTIONS (1)
  - Anaphylactic shock [Recovered/Resolved]
